FAERS Safety Report 10838671 (Version 1)
Quarter: 2015Q1

REPORT INFORMATION
  Report Type: Report from Study
  Country: US (occurrence: US)
  Receive Date: 20150219
  Receipt Date: 20150219
  Transmission Date: 20150721
  Serious: No
  Sender: FDA-Public Use
  Company Number: US-ABBVIE-14P-163-1223761-00

PATIENT
  Age: 62 Year
  Sex: Female

DRUGS (1)
  1. HUMIRA [Suspect]
     Active Substance: ADALIMUMAB
     Indication: PRODUCT USED FOR UNKNOWN INDICATION
     Route: 058
     Dates: start: 20140130

REACTIONS (7)
  - Arthritis [Unknown]
  - Alopecia [Unknown]
  - Weight increased [Unknown]
  - Psoriasis [Unknown]
  - Joint swelling [Unknown]
  - Hot flush [Unknown]
  - Hypersensitivity [Unknown]
